FAERS Safety Report 8185436-8 (Version None)
Quarter: 2012Q1

REPORT INFORMATION
  Report Type: 
  Country: None (occurrence: None)
  Receive Date: 20120305
  Receipt Date: 20120227
  Transmission Date: 20120608
  Serious: Yes (Other)
  Sender: FDA-Public Use
  Company Number: US-BAYER-2012-019758

PATIENT

DRUGS (1)
  1. PHILLIPS' LIQUID GELS STOOL SOFTENER [Suspect]
     Dosage: 1 DF, ONCE
     Route: 048

REACTIONS (3)
  - DIARRHOEA [None]
  - ANXIETY [None]
  - ABDOMINAL PAIN [None]
